FAERS Safety Report 21571740 (Version 1)
Quarter: 2022Q4

REPORT INFORMATION
  Report Type: Spontaneous
  Country: US (occurrence: US)
  Receive Date: 20221109
  Receipt Date: 20221109
  Transmission Date: 20230112
  Serious: Yes (Hospitalization)
  Sender: FDA-Public Use
  Company Number: US-PARI RESPIRATORY EQUIPMENT, INC.-2022PAR00065

PATIENT
  Age: 13 Year
  Sex: Male

DRUGS (15)
  1. KITABIS PAK [Suspect]
     Active Substance: TOBRAMYCIN
     Indication: Respiratory disorder
     Dosage: 300 MG (5 ML) VIA NEBULIZER, 2X/DAY FOR 28 DAYS ON AND 28 DAYS OFF, REPEAT
     Dates: start: 20190627
  2. ALBUTEROL SULFATE [Concomitant]
     Active Substance: ALBUTEROL SULFATE
  3. BENADRYL [Concomitant]
     Active Substance: DIPHENHYDRAMINE HYDROCHLORIDE
  4. CALMOSEPTINE [MENTHOL;ZINC OXIDE] [Concomitant]
  5. DIASTAT ACUDIAL [Concomitant]
     Active Substance: DIAZEPAM
  6. GLYCOPYRROLATE [Concomitant]
     Active Substance: GLYCOPYRROLATE
  7. HYDROCORTISONE ACETATE [Concomitant]
     Active Substance: HYDROCORTISONE ACETATE
  8. IBUPROFEN [Concomitant]
     Active Substance: IBUPROFEN
  9. KUVAN [Concomitant]
     Active Substance: SAPROPTERIN DIHYDROCHLORIDE
  10. LEVETIRACETAM [Concomitant]
     Active Substance: LEVETIRACETAM
  11. MELATONIN [Concomitant]
     Active Substance: MELATONIN
  12. MIRALAX [Concomitant]
     Active Substance: POLYETHYLENE GLYCOL 3350
  13. MUPIROCIN [Concomitant]
     Active Substance: MUPIROCIN
  14. NYSTATIN\TRIAMCINOLONE [Concomitant]
     Active Substance: NYSTATIN\TRIAMCINOLONE
  15. NYSTATIN [Concomitant]
     Active Substance: NYSTATIN

REACTIONS (5)
  - Respiratory syncytial virus infection [Unknown]
  - Infection [Unknown]
  - Cystic fibrosis [Unknown]
  - Respiratory symptom [Unknown]
  - Off label use [Not Recovered/Not Resolved]

NARRATIVE: CASE EVENT DATE: 20190627
